FAERS Safety Report 8964169 (Version 3)
Quarter: 2012Q4

REPORT INFORMATION
  Report Type: Report from Study
  Country: JP (occurrence: JP)
  Receive Date: 20121213
  Receipt Date: 20121227
  Transmission Date: 20130627
  Serious: Yes (Hospitalization)
  Sender: FDA-Public Use
  Company Number: JP-B.I. PHARMACEUTICALS,INC./RIDGEFIELD-2012-RU-00690BP

PATIENT
  Age: 85 Year
  Sex: Male
  Weight: 57.8 kg

DRUGS (11)
  1. TIOTROPIUM [Suspect]
     Indication: CHRONIC OBSTRUCTIVE PULMONARY DISEASE
     Route: 055
     Dates: start: 20120619, end: 20121203
  2. TRIAL PROCEDURE [Suspect]
     Indication: CHRONIC OBSTRUCTIVE PULMONARY DISEASE
  3. MEVARICH [Concomitant]
     Indication: HYPERLIPIDAEMIA
     Dosage: 10 mg
     Route: 048
  4. SEDEKOPAN [Concomitant]
     Indication: ANXIETY DISORDER
     Dosage: 0.5 mg
     Route: 048
     Dates: start: 20120509
  5. AMLODIPINE [Concomitant]
     Indication: HYPERTENSION
     Dosage: 5 mg
     Route: 048
     Dates: start: 20120509
  6. LANSOPRAZOLE [Concomitant]
     Indication: GASTROOESOPHAGEAL REFLUX DISEASE
     Dosage: 15 mg
     Route: 048
     Dates: start: 20120509
  7. CEROCRAL [Concomitant]
     Indication: CEREBRAL INFARCTION
     Dosage: 60 mg
     Route: 048
     Dates: start: 20120509
  8. PULMICORT [Concomitant]
     Indication: CHRONIC OBSTRUCTIVE PULMONARY DISEASE
     Dosage: 800 mcg
     Route: 055
     Dates: start: 20120508
  9. BAYASPIRIN [Concomitant]
     Indication: CEREBRAL INFARCTION
     Dosage: 100 mg
     Route: 048
     Dates: start: 20120913
  10. MAGMITT [Concomitant]
     Indication: CONSTIPATION
     Dosage: 750 mg
     Route: 048
     Dates: start: 20120907
  11. FUROSEMIDE [Concomitant]
     Indication: CARDIAC FAILURE CHRONIC
     Dosage: 20 mg
     Route: 048
     Dates: start: 20120920

REACTIONS (5)
  - Cardiac failure chronic [Recovered/Resolved]
  - Atrial fibrillation [Not Recovered/Not Resolved]
  - Pneumonia [Recovered/Resolved]
  - Pleural effusion [None]
  - Hyperkalaemia [None]
